FAERS Safety Report 15270655 (Version 7)
Quarter: 2018Q4

REPORT INFORMATION
  Report Type: Spontaneous
  Country: US (occurrence: US)
  Receive Date: 20180813
  Receipt Date: 20181019
  Transmission Date: 20190204
  Serious: Yes (Hospitalization)
  Sender: FDA-Public Use
  Company Number: US-PFIZER INC-2018321174

PATIENT
  Age: 81 Year
  Sex: Female
  Weight: 54 kg

DRUGS (9)
  1. SUTENT [Suspect]
     Active Substance: SUNITINIB MALATE
     Dosage: 37.5 MG, CYCLIC [WEEKS ON/1 WEEK OFF]
     Dates: start: 20180727
  2. VITAMIN D [Concomitant]
     Active Substance: CHOLECALCIFEROL
     Dosage: UNK
  3. PROBIOTIC [Concomitant]
     Active Substance: PROBIOTICS NOS
     Dosage: UNK
  4. VITAMIN B12 [Concomitant]
     Active Substance: CYANOCOBALAMIN
     Dosage: UNK
  5. SUTENT [Suspect]
     Active Substance: SUNITINIB MALATE
     Indication: RENAL CANCER STAGE IV
     Dosage: 50 MG, CYCLIC (2 WEEKS ON/1 WEEK OFF)
     Dates: start: 20180727, end: 20180817
  6. METOPROLOL. [Concomitant]
     Active Substance: METOPROLOL
     Dosage: UNK
  7. SYNTHROID [Concomitant]
     Active Substance: LEVOTHYROXINE SODIUM
     Dosage: UNK
  8. MAGNESIUM [Concomitant]
     Active Substance: MAGNESIUM
     Dosage: UNK
  9. SUTENT [Suspect]
     Active Substance: SUNITINIB MALATE
     Dosage: 37.5 MG, CYCLIC (SUTENT 37.5 MG - 2 WEEKS ON / 1 WEEK OFF)
     Dates: start: 20180828, end: 201809

REACTIONS (27)
  - Dry mouth [Unknown]
  - Pain in jaw [Unknown]
  - Balance disorder [Unknown]
  - Vomiting [Unknown]
  - Chest pain [Unknown]
  - Haemoglobin decreased [Unknown]
  - Hypertension [Unknown]
  - Asthenia [Recovering/Resolving]
  - Hypersomnia [Unknown]
  - Hypotension [Unknown]
  - Flatulence [Unknown]
  - Nodule [Unknown]
  - Dyspnoea [Unknown]
  - Dysgeusia [Unknown]
  - Thyroid hormones increased [Unknown]
  - Aortic disorder [Recovering/Resolving]
  - Weight decreased [Unknown]
  - Musculoskeletal pain [Unknown]
  - Heart rate increased [Unknown]
  - Excessive cerumen production [Unknown]
  - Fatigue [Unknown]
  - Chromaturia [Unknown]
  - Hypoacusis [Unknown]
  - Platelet count decreased [Unknown]
  - Decreased appetite [Unknown]
  - Skin papilloma [Recovered/Resolved]
  - Neck pain [Unknown]

NARRATIVE: CASE EVENT DATE: 2018
